FAERS Safety Report 9725326 (Version 1)
Quarter: 2013Q4

REPORT INFORMATION
  Report Type: Spontaneous
  Country: US (occurrence: None)
  Receive Date: 20131129
  Receipt Date: 20131129
  Transmission Date: 20140711
  Serious: Yes (Other)
  Sender: FDA-Public Use
  Company Number: 2013-US-003557

PATIENT
  Age: 45 Year
  Sex: Female
  Weight: 45.4 kg

DRUGS (5)
  1. XYREM (SODIUM OXYBATE) ORAL SOLUTION, 500MG/ML [Suspect]
     Indication: INSOMNIA
     Route: 048
     Dates: start: 201203
  2. KLOR-CON (POTASSIUM CHLORIDE) [Concomitant]
  3. NEXIUM (ESOMEPRAZOLE MAGNESIUM) [Concomitant]
  4. AMITRIPTYLINE (AMITRIPTYLINE HYDROCHLORIDE) [Concomitant]
  5. PAXIL (PAROXETINE HYDROCHLORIDE) [Concomitant]

REACTIONS (6)
  - Fall [None]
  - Upper limb fracture [None]
  - Medical device implantation [None]
  - Nail infection [None]
  - Hypoaesthesia [None]
  - Paraesthesia [None]
